FAERS Safety Report 4931008-5 (Version None)
Quarter: 2006Q1

REPORT INFORMATION
  Report Type: 
  Country: None (occurrence: None)
  Receive Date: 20060227
  Receipt Date: 20060216
  Transmission Date: 20060701
  Serious: Yes (Other)
  Sender: FDA-Public Use
  Company Number: 2006022983

PATIENT
  Age: 27 Year
  Sex: Female
  Weight: 72.5755 kg

DRUGS (1)
  1. UNISOM [Suspect]
     Dosage: 8 SLEEP GELS ONCE; ORAL
     Route: 048
     Dates: start: 20060216, end: 20060216

REACTIONS (2)
  - OVERDOSE [None]
  - SOMNOLENCE [None]
